FAERS Safety Report 18584400 (Version 1)
Quarter: 2020Q4

REPORT INFORMATION
  Report Type: Spontaneous
  Country: JP (occurrence: JP)
  Receive Date: 20201207
  Receipt Date: 20201207
  Transmission Date: 20210114
  Serious: Yes (Hospitalization)
  Sender: FDA-Public Use
  Company Number: JP-TEVA-2020-JP-1856039

PATIENT
  Age: 2 Month
  Sex: Female

DRUGS (4)
  1. PNEUMOCOCCAL CONJUGATE VACCINE [Suspect]
     Active Substance: PNEUMOCOCCAL VACCINE POLYVALENT
     Indication: IMMUNISATION
     Route: 065
  2. VAXEM-HIB [Suspect]
     Active Substance: HAEMOPHILUS INFLUENZAE TYPE B CAPSULAR POLYSACCHARIDE DIPHTHERIA CRM197 PROTEIN CONJUGATE ANTIGEN
     Indication: IMMUNISATION
     Route: 065
  3. PREDNISOLONE. [Suspect]
     Active Substance: PREDNISOLONE
     Indication: COLD TYPE HAEMOLYTIC ANAEMIA
     Dosage: 2 MG/KG/DAY
     Route: 065
  4. PREDNISOLONE. [Suspect]
     Active Substance: PREDNISOLONE
     Indication: COLD TYPE HAEMOLYTIC ANAEMIA
     Dosage: STEPWISE REDUCTION OF PREDNISOLONE TO 1 MG/ KG/DAY
     Route: 065

REACTIONS (2)
  - Rebound effect [Unknown]
  - Cold type haemolytic anaemia [Recovered/Resolved]
